FAERS Safety Report 4305785-0 (Version None)
Quarter: 2004Q1

REPORT INFORMATION
  Report Type: 
  Country: None (occurrence: None)
  Receive Date: 20040225
  Receipt Date: 20040212
  Transmission Date: 20041129
  Serious: Yes (Life-Threatening, Hospitalization)
  Sender: FDA-Public Use
  Company Number: HQWYE015717FEB04

PATIENT
  Age: 69 Year
  Sex: Female

DRUGS (1)
  1. TAZOCEL (PIPERACILLIN/TAZOBACTAM, INJECTION) [Suspect]
     Indication: PANCREATITIS ACUTE
     Dosage: 4.5 GRAMS
     Route: 042
     Dates: end: 20040208

REACTIONS (4)
  - ANAPHYLACTIC SHOCK [None]
  - CYANOSIS [None]
  - LOSS OF CONSCIOUSNESS [None]
  - RESPIRATORY ARREST [None]
